FAERS Safety Report 20609904 (Version 3)
Quarter: 2022Q2

REPORT INFORMATION
  Report Type: Report from Study
  Country: US (occurrence: US)
  Receive Date: 20220318
  Receipt Date: 20220519
  Transmission Date: 20220721
  Serious: Yes (Other)
  Sender: FDA-Public Use
  Company Number: US-NOVARTISTESTPH-NVSC2022US062178

PATIENT
  Sex: Female
  Weight: 40.363 kg

DRUGS (1)
  1. TABRECTA [Suspect]
     Active Substance: CAPMATINIB
     Indication: Lung neoplasm malignant
     Dosage: 200 MG, BID
     Route: 048
     Dates: start: 202201

REACTIONS (5)
  - Pneumonitis [Not Recovered/Not Resolved]
  - Rash pruritic [Unknown]
  - Taste disorder [Unknown]
  - Weight gain poor [Unknown]
  - Decreased appetite [Unknown]
